FAERS Safety Report 6186500-5 (Version None)
Quarter: 2009Q2

REPORT INFORMATION
  Report Type: 
  Country: None (occurrence: None)
  Receive Date: 20090512
  Receipt Date: 20090504
  Transmission Date: 20091009
  Serious: Yes (Other)
  Sender: FDA-Public Use
  Company Number: US-BAYER-200920004NA

PATIENT
  Age: 39 Year
  Sex: Female

DRUGS (2)
  1. BETASERON [Suspect]
     Indication: RELAPSING-REMITTING MULTIPLE SCLEROSIS
     Dosage: TOTAL DAILY DOSE: 8 MIU
     Route: 058
     Dates: start: 20090320
  2. LEXAPRO [Concomitant]
     Dosage: MORE THAN 5 YEARS

REACTIONS (6)
  - INJECTION SITE HAEMORRHAGE [None]
  - INJECTION SITE IRRITATION [None]
  - NARCOLEPSY [None]
  - SLEEP ATTACKS [None]
  - SOMNOLENCE [None]
  - WEIGHT INCREASED [None]
